FAERS Safety Report 22232936 (Version 1)
Quarter: 2023Q2

REPORT INFORMATION
  Report Type: Other
  Country: US (occurrence: None)
  Receive Date: 20230420
  Receipt Date: 20230420
  Transmission Date: 20230722
  Serious: No
  Sender: FDA-Public Use
  Company Number: US-ROCHE-3162261

PATIENT
  Age: 48 Year
  Sex: Female

DRUGS (4)
  1. BEVACIZUMAB [Suspect]
     Active Substance: BEVACIZUMAB
     Indication: Respiratory papilloma
     Dosage: AFTER ONE YEAR, ADMINISTRATION OF BEVACIZUMAB WAS SPACED OUT TO EVERY 12 WEEKS.
     Route: 065
  2. BEVACIZUMAB [Suspect]
     Active Substance: BEVACIZUMAB
     Indication: Squamous cell carcinoma of lung
  3. NIVOLUMAB [Concomitant]
     Active Substance: NIVOLUMAB
     Indication: Squamous cell carcinoma of lung
  4. NIVOLUMAB [Concomitant]
     Active Substance: NIVOLUMAB
     Indication: Respiratory papilloma

REACTIONS (2)
  - Off label use [Unknown]
  - No adverse event [Unknown]
